FAERS Safety Report 6204865-2 (Version None)
Quarter: 2009Q2

REPORT INFORMATION
  Report Type: 
  Country: None (occurrence: None)
  Receive Date: 20090522
  Receipt Date: 20090421
  Transmission Date: 20091009
  Serious: Yes (Life-Threatening, Hospitalization)
  Sender: FDA-Public Use
  Company Number: 2009EN000140

PATIENT
  Age: 27 Year
  Sex: Male
  Weight: 75.4 kg

DRUGS (7)
  1. ONCASPAR [Suspect]
     Indication: ACUTE LYMPHOCYTIC LEUKAEMIA
     Dosage: 2500 IU/M2; IV; 428 IU;X1;IV
     Route: 042
     Dates: start: 20090421, end: 20090421
  2. METHOTREXATE [Concomitant]
  3. CYTOXAN [Concomitant]
  4. COUMADIN [Concomitant]
  5. BACTRIM [Concomitant]
  6. ACYCLOVIR [Concomitant]
  7. PRILOSEC [Concomitant]

REACTIONS (2)
  - ANAPHYLACTIC REACTION [None]
  - EYE PRURITUS [None]
